FAERS Safety Report 5166066-9 (Version None)
Quarter: 2006Q4

REPORT INFORMATION
  Report Type: 
  Country: None (occurrence: None)
  Receive Date: 20061206
  Receipt Date: 20061128
  Transmission Date: 20070319
  Serious: Yes (Death, Life-Threatening, Other)
  Sender: FDA-Public Use
  Company Number: PH-MERCK-0611PHL00014

PATIENT
  Age: 59 Year
  Sex: Male

DRUGS (6)
  1. PRIMAXIN [Suspect]
     Indication: BACTERAEMIA
     Route: 041
     Dates: start: 20061118
  2. PRIMAXIN [Suspect]
     Indication: PNEUMONIA
     Route: 041
     Dates: start: 20061118
  3. CEFEPIME [Concomitant]
     Indication: BACTERAEMIA
     Route: 041
     Dates: end: 20061117
  4. CEFEPIME [Concomitant]
     Indication: PNEUMONIA
     Route: 041
     Dates: end: 20061117
  5. LEVOFLOXACIN [Concomitant]
     Indication: BACTERAEMIA
     Route: 041
     Dates: end: 20061117
  6. LEVOFLOXACIN [Concomitant]
     Indication: PNEUMONIA
     Route: 041
     Dates: end: 20061117

REACTIONS (3)
  - CARDIAC FAILURE [None]
  - CONVULSION [None]
  - HYPOTENSION [None]
